FAERS Safety Report 5866769-4 (Version None)
Quarter: 2008Q3

REPORT INFORMATION
  Report Type: 
  Country: None (occurrence: None)
  Receive Date: 20080902
  Receipt Date: 20051024
  Transmission Date: 20090109
  Serious: Yes (Other)
  Sender: FDA-Public Use
  Company Number: US-BAYER-200830682NA

PATIENT
  Sex: Female

DRUGS (2)
  1. AVELOX [Suspect]
     Indication: LOWER RESPIRATORY TRACT INFECTION
     Route: 048
  2. PREDNISONE TAB [Concomitant]

REACTIONS (6)
  - ANAPHYLACTIC REACTION [None]
  - ERYTHEMA [None]
  - LOSS OF CONSCIOUSNESS [None]
  - MYOCARDIAL INFARCTION [None]
  - URTICARIA [None]
  - WHITE BLOOD CELL COUNT INCREASED [None]
